FAERS Safety Report 4303534-3 (Version None)
Quarter: 2004Q1

REPORT INFORMATION
  Report Type: 
  Country: None (occurrence: None)
  Receive Date: 20040224
  Receipt Date: 20040224
  Transmission Date: 20041129
  Serious: No
  Sender: FDA-Public Use
  Company Number: None

PATIENT
  Age: 90 Year
  Sex: Female
  Weight: 86.1834 kg

DRUGS (2)
  1. MAXZIDE [Suspect]
     Dosage: ONE DAILY
  2. DARVOCET-N 100 [Suspect]
     Dosage: ONE DAILY

REACTIONS (2)
  - ASTHENIA [None]
  - URTICARIA [None]
